FAERS Safety Report 4626499-3 (Version None)
Quarter: 2005Q2

REPORT INFORMATION
  Report Type: 
  Country: None (occurrence: None)
  Receive Date: 20050404
  Receipt Date: 20050329
  Transmission Date: 20051028
  Serious: Yes (Disabling)
  Sender: FDA-Public Use
  Company Number: US-MERCK-0503USA05124

PATIENT
  Age: 61 Year
  Sex: Male

DRUGS (6)
  1. ZOCOR [Suspect]
     Indication: HYPERCHOLESTEROLAEMIA
     Route: 048
  2. GLUCOVANCE [Concomitant]
     Route: 065
  3. ACTOS [Concomitant]
     Route: 065
  4. SYNTHROID [Concomitant]
     Route: 065
  5. ZOLOFT [Concomitant]
     Route: 065
  6. ALLOPURINOL [Concomitant]
     Route: 065

REACTIONS (2)
  - ASTHENIA [None]
  - PAIN IN EXTREMITY [None]
